FAERS Safety Report 24054650 (Version 2)
Quarter: 2024Q3

REPORT INFORMATION
  Report Type: Spontaneous
  Country: CN (occurrence: CN)
  Receive Date: 20240705
  Receipt Date: 20240709
  Transmission Date: 20241017
  Serious: Yes (Death, Life-Threatening, Hospitalization, Other)
  Sender: PFIZER
  Company Number: CN-MLMSERVICE-20240625-PI111522-00097-1

PATIENT
  Age: 64 Year
  Sex: Male

DRUGS (5)
  1. METHYLPREDNISOLONE [Suspect]
     Active Substance: METHYLPREDNISOLONE
     Indication: Renal transplant
     Dosage: 500 MG
  2. MYCOPHENOLATE SODIUM [Suspect]
     Active Substance: MYCOPHENOLATE SODIUM
     Indication: Renal transplant
     Dosage: ENTERIC-COATED
  3. BASILIXIMAB [Suspect]
     Active Substance: BASILIXIMAB
     Indication: Renal transplant
     Dosage: 20 MG
  4. PREDNISONE [Suspect]
     Active Substance: PREDNISONE
     Indication: Renal transplant
     Dosage: UNK
  5. CYCLOSPORINE [Suspect]
     Active Substance: CYCLOSPORINE
     Indication: Renal transplant
     Dosage: UNK

REACTIONS (7)
  - Ureaplasma infection [Fatal]
  - Epstein-Barr virus infection [Unknown]
  - Hypoxic-ischaemic encephalopathy [Fatal]
  - Hyperammonaemia [Fatal]
  - Cytomegalovirus infection [Recovering/Resolving]
  - Multiple organ dysfunction syndrome [Fatal]
  - Brain death [Fatal]
